FAERS Safety Report 4607033-0 (Version None)
Quarter: 2005Q1

REPORT INFORMATION
  Report Type: 
  Country: None (occurrence: None)
  Receive Date: 20050309
  Receipt Date: 20050223
  Transmission Date: 20050727
  Serious: Yes (Other)
  Sender: FDA-Public Use
  Company Number: A-US-2005-08893

PATIENT
  Age: 67 Year
  Sex: Female
  Weight: 97.5 kg

DRUGS (14)
  1. TRACLEER [Suspect]
     Indication: PULMONARY HYPERTENSION
     Dosage: SEE IMAGE, ORAL
     Route: 048
     Dates: start: 20030127, end: 20030223
  2. TRACLEER [Suspect]
     Indication: PULMONARY HYPERTENSION
     Dosage: SEE IMAGE, ORAL
     Route: 048
     Dates: start: 20030224, end: 20050203
  3. PRAVACHOL [Concomitant]
  4. HUMALOG [Concomitant]
  5. PREVACID [Concomitant]
  6. SYNTHROID [Concomitant]
  7. ZYLOPRIM [Concomitant]
  8. ZOLOFT [Concomitant]
  9. BUMEX [Concomitant]
  10. DIOVAN [Concomitant]
  11. LANTUS [Concomitant]
  12. CALCIUM (CALCIUM) [Concomitant]
  13. POTASSIUM ACETATE [Concomitant]
  14. CARDIZEM [Concomitant]

REACTIONS (11)
  - ABDOMINAL PAIN UPPER [None]
  - ALCOHOLIC LIVER DISEASE [None]
  - AORTIC ATHEROSCLEROSIS [None]
  - AORTIC CALCIFICATION [None]
  - CARDIOMEGALY [None]
  - GASTRIC POLYPS [None]
  - HAEMOGLOBIN ABNORMAL [None]
  - HEPATIC FIBROSIS [None]
  - HEPATIC STEATOSIS [None]
  - RECTAL POLYP [None]
  - SPLENOMEGALY [None]
